FAERS Safety Report 24528522 (Version 3)
Quarter: 2024Q4

REPORT INFORMATION
  Report Type: Spontaneous
  Country: JP (occurrence: JP)
  Receive Date: 20241021
  Receipt Date: 20241029
  Transmission Date: 20250115
  Serious: Yes (Death, Life-Threatening, Other)
  Sender: PFIZER
  Company Number: JP-PFIZER INC-PV202400133802

PATIENT
  Age: 68 Year
  Sex: Male

DRUGS (4)
  1. DOCETAXEL [Suspect]
     Active Substance: DOCETAXEL
     Indication: Squamous cell carcinoma of the hypopharynx
     Dosage: 60 MG/M2, ON DAY 1
  2. CISPLATIN [Suspect]
     Active Substance: CISPLATIN
     Indication: Squamous cell carcinoma of the hypopharynx
     Dosage: 60 MG/M2, ON DAY 1
  3. CISPLATIN [Suspect]
     Active Substance: CISPLATIN
     Dosage: UNK
  4. FLUOROURACIL [Suspect]
     Active Substance: FLUOROURACIL
     Indication: Squamous cell carcinoma of the hypopharynx
     Dosage: 600 MG/M2, FROM DAY 1 TO DAY 5

REACTIONS (1)
  - Intestinal ischaemia [Fatal]
